FAERS Safety Report 21057598 (Version 1)
Quarter: 2022Q3

REPORT INFORMATION
  Report Type: Report from Study
  Country: GB (occurrence: GB)
  Receive Date: 20220708
  Receipt Date: 20220708
  Transmission Date: 20221026
  Serious: Yes (Hospitalization)
  Sender: FDA-Public Use
  Company Number: GB-PFIZER INC-2020099119

PATIENT
  Age: 59 Year
  Sex: Male
  Weight: 61.8 kg

DRUGS (7)
  1. ABROCITINIB [Suspect]
     Active Substance: ABROCITINIB
     Indication: Dermatitis atopic
     Dosage: 200 MG, 1X/DAY
     Route: 048
     Dates: start: 20190706, end: 20200303
  2. CALCIUM CARBONATE\CHOLECALCIFEROL [Concomitant]
     Active Substance: CALCIUM CARBONATE\CHOLECALCIFEROL
     Indication: Supplementation therapy
     Dosage: 2 TABLET, 2X/DAY
     Route: 048
     Dates: start: 2008
  3. BECLOMETHASONE\FORMOTEROL [Concomitant]
     Active Substance: BECLOMETHASONE\FORMOTEROL
     Indication: Chronic obstructive pulmonary disease
     Dosage: 1 PUFF, 2X/DAY, INHALER, [BECLOMETASONE DIPROPIONATE 200]/[FORMOTEROL FUMARATE 6]
     Route: 055
     Dates: start: 2017
  4. ALBUTEROL [Concomitant]
     Active Substance: ALBUTEROL
     Indication: Chronic obstructive pulmonary disease
     Dosage: 200 UG, AS NEEDED
     Route: 055
     Dates: start: 1970
  5. TIOTROPIUM BROMIDE [Concomitant]
     Active Substance: TIOTROPIUM BROMIDE
     Indication: Chronic obstructive pulmonary disease
     Dosage: 10 UG, 1X/DAY
     Route: 055
     Dates: start: 2017
  6. MINERAL OIL\PETROLATUM\WAX, EMULSIFYING [Concomitant]
     Active Substance: MINERAL OIL\PETROLATUM\WAX, EMULSIFYING
     Indication: Eczema
     Dosage: 1 APPLICATION, AS NEEDED
     Route: 061
     Dates: start: 2017
  7. ISOPROPYL MYRISTATE\MINERAL OIL [Concomitant]
     Active Substance: ISOPROPYL MYRISTATE\MINERAL OIL
     Indication: Eczema
     Dosage: 1 APPLICATION, AS NEEDED
     Route: 061
     Dates: start: 2007

REACTIONS (1)
  - Cellulitis [Recovered/Resolved]

NARRATIVE: CASE EVENT DATE: 20200228
